FAERS Safety Report 16850525 (Version 1)
Quarter: 2019Q3

REPORT INFORMATION
  Report Type: Spontaneous
  Country: US (occurrence: US)
  Receive Date: 20190925
  Receipt Date: 20190925
  Transmission Date: 20191005
  Serious: No
  Sender: FDA-Public Use
  Company Number: US-UPSHER-SMITH LABORATORIES, LLC-2018USL00511

PATIENT
  Sex: Male
  Weight: 74.83 kg

DRUGS (9)
  1. BACLOFEN. [Suspect]
     Active Substance: BACLOFEN
     Dosage: 40 MG, 3X/DAY
     Route: 048
     Dates: start: 2018
  2. CLONAZEPAM. [Concomitant]
     Active Substance: CLONAZEPAM
     Dosage: UNK, AS NEEDED
  3. AMBIEN [Concomitant]
     Active Substance: ZOLPIDEM TARTRATE
     Dosage: UNK, AS NEEDED AT NIGHT
  4. BACLOFEN. [Suspect]
     Active Substance: BACLOFEN
     Indication: MUSCLE SPASTICITY
     Dosage: 30 MG, 3X/DAY
     Route: 048
     Dates: start: 2018, end: 2018
  5. BACLOFEN. [Suspect]
     Active Substance: BACLOFEN
     Dosage: 40 MG, 1X/DAY (AT NIGHT)
     Dates: start: 2018, end: 2018
  6. ZANAFLEX [Concomitant]
     Active Substance: TIZANIDINE HYDROCHLORIDE
  7. AMPYRA [Concomitant]
     Active Substance: DALFAMPRIDINE
  8. BACLOFEN. [Suspect]
     Active Substance: BACLOFEN
     Dosage: 30 MG, 2X/DAY
     Route: 048
     Dates: start: 2018, end: 2018
  9. DIAZEPAM. [Concomitant]
     Active Substance: DIAZEPAM

REACTIONS (7)
  - Intentional product use issue [Not Recovered/Not Resolved]
  - Gait disturbance [Not Recovered/Not Resolved]
  - Muscle tightness [Not Recovered/Not Resolved]
  - Drug ineffective [Not Recovered/Not Resolved]
  - Hypotonia [Not Recovered/Not Resolved]
  - Fall [Not Recovered/Not Resolved]
  - Head injury [Not Recovered/Not Resolved]

NARRATIVE: CASE EVENT DATE: 2018
